FAERS Safety Report 13544623 (Version 1)
Quarter: 2017Q2

REPORT INFORMATION
  Report Type: Report from Study
  Country: DE (occurrence: DE)
  Receive Date: 20170515
  Receipt Date: 20170515
  Transmission Date: 20170830
  Serious: Yes (Death, Other)
  Sender: FDA-Public Use
  Company Number: DE-ADIENNEP-2017AD000125

PATIENT
  Sex: Female

DRUGS (3)
  1. THIOTEPA. [Suspect]
     Active Substance: THIOTEPA
     Indication: BONE MARROW CONDITIONING REGIMEN
     Dosage: 2 DOSAGES 5 MG/KG DAILY
  2. FLUDARABINE [Suspect]
     Active Substance: FLUDARABINE PHOSPHATE
     Indication: BONE MARROW CONDITIONING REGIMEN
     Dosage: 30 MG/M2 DAILY
  3. MELPHALAN. [Suspect]
     Active Substance: MELPHALAN
     Indication: BONE MARROW CONDITIONING REGIMEN
     Dosage: 60 MG/M2 DAILY

REACTIONS (5)
  - Infection [Fatal]
  - Meningoencephalitis herpetic [Unknown]
  - Mucosal inflammation [Unknown]
  - Human herpesvirus 6 infection [Unknown]
  - Meningomyelitis herpes [Unknown]
